FAERS Safety Report 9314357 (Version 1)
Quarter: 2013Q2

REPORT INFORMATION
  Report Type: Spontaneous
  Country: US (occurrence: None)
  Receive Date: 20130524
  Receipt Date: 20130524
  Transmission Date: 20140414
  Serious: Yes (Life-Threatening, Hospitalization, Disabling, Congenital Anomaly, Other)
  Sender: FDA-Public Use
  Company Number: None

PATIENT
  Sex: 0
  Weight: 97.52 kg

DRUGS (1)
  1. LEVOTHYROXINE [Suspect]
     Dates: start: 20120904

REACTIONS (2)
  - Blood thyroid stimulating hormone decreased [None]
  - Product substitution issue [None]
